FAERS Safety Report 6600010-X (Version None)
Quarter: 2010Q1

REPORT INFORMATION
  Report Type: 
  Country: None (occurrence: None)
  Receive Date: 20100224
  Receipt Date: 20100115
  Transmission Date: 20100710
  Serious: Yes (Death, Life-Threatening, Hospitalization)
  Sender: FDA-Public Use
  Company Number: US-BAXTER-2009BH008177

PATIENT
  Age: 81 Year
  Sex: Male
  Weight: 89 kg

DRUGS (29)
  1. HEPARIN SODIUM INJECTION [Suspect]
     Indication: THROMBOSIS PROPHYLAXIS
     Route: 010
     Dates: start: 20070601, end: 20071001
  2. HEPARIN SODIUM INJECTION [Suspect]
     Indication: ANGIOPLASTY
     Route: 010
     Dates: start: 20070601, end: 20071001
  3. HEPARIN SODIUM INJECTION [Suspect]
     Route: 065
     Dates: start: 20071023, end: 20071023
  4. HEPARIN SODIUM INJECTION [Suspect]
     Route: 065
     Dates: start: 20071023, end: 20071023
  5. HEPARIN SODIUM INJECTION [Suspect]
     Route: 010
     Dates: start: 20071022, end: 20071022
  6. HEPARIN SODIUM INJECTION [Suspect]
     Route: 010
     Dates: start: 20071022, end: 20071022
  7. HEPARIN SODIUM INJECTION [Suspect]
     Route: 010
     Dates: start: 20071018, end: 20071018
  8. HEPARIN SODIUM INJECTION [Suspect]
     Route: 010
     Dates: start: 20071018, end: 20071018
  9. HEPARIN SODIUM INJECTION [Suspect]
     Route: 010
     Dates: start: 20071023, end: 20071023
  10. HEPARIN SODIUM INJECTION [Suspect]
     Route: 010
     Dates: start: 20071023, end: 20071023
  11. HEPARIN SODIUM INJECTION [Suspect]
     Route: 010
     Dates: start: 20071024, end: 20071025
  12. HEPARIN SODIUM INJECTION [Suspect]
     Route: 010
     Dates: start: 20071024, end: 20071025
  13. HEPARIN SODIUM 10,000 UNITS IN SODIUM CHLORIDE 0.45% [Suspect]
     Indication: DEEP VEIN THROMBOSIS
     Route: 041
     Dates: start: 20071020, end: 20071022
  14. NITROGLYCERIN [Concomitant]
     Indication: DRUG USE FOR UNKNOWN INDICATION
     Route: 060
  15. ASPIRIN [Concomitant]
     Indication: DRUG USE FOR UNKNOWN INDICATION
     Route: 048
  16. VITAMIN B-COMPLEX WITH VITAMIN C [Concomitant]
     Indication: DRUG USE FOR UNKNOWN INDICATION
     Route: 065
  17. AMIODARONE HCL [Concomitant]
     Indication: DRUG USE FOR UNKNOWN INDICATION
     Route: 048
  18. METOPROLOL TARTRATE [Concomitant]
     Indication: DRUG USE FOR UNKNOWN INDICATION
     Route: 048
  19. HYDRALAZINE [Concomitant]
     Indication: DRUG USE FOR UNKNOWN INDICATION
     Route: 048
  20. BUMEX [Concomitant]
     Indication: DRUG USE FOR UNKNOWN INDICATION
     Route: 065
  21. ALLOPURINOL [Concomitant]
     Indication: DRUG USE FOR UNKNOWN INDICATION
     Route: 048
  22. DIGOXIN [Concomitant]
     Indication: DRUG USE FOR UNKNOWN INDICATION
     Route: 065
  23. COMBIVENT                               /GFR/ [Concomitant]
     Indication: DRUG USE FOR UNKNOWN INDICATION
     Route: 055
  24. WARFARIN SODIUM [Concomitant]
     Indication: DRUG USE FOR UNKNOWN INDICATION
     Route: 065
  25. ZOCOR [Concomitant]
     Indication: DRUG USE FOR UNKNOWN INDICATION
     Route: 048
  26. RESTORIL [Concomitant]
     Indication: DRUG USE FOR UNKNOWN INDICATION
     Route: 048
  27. EPOGEN [Concomitant]
     Indication: DRUG USE FOR UNKNOWN INDICATION
     Route: 042
  28. NITROGLYCERIN [Concomitant]
     Indication: DRUG USE FOR UNKNOWN INDICATION
     Route: 061
  29. DIATX [Concomitant]
     Indication: DRUG USE FOR UNKNOWN INDICATION
     Route: 048

REACTIONS (29)
  - ABDOMINAL DISCOMFORT [None]
  - CARDIAC ARREST [None]
  - CHEST PAIN [None]
  - CONFUSIONAL STATE [None]
  - COUGH [None]
  - DEEP VEIN THROMBOSIS [None]
  - DEVICE FAILURE [None]
  - DEVICE RELATED INFECTION [None]
  - DIARRHOEA [None]
  - DYSPNOEA [None]
  - ESCHERICHIA INFECTION [None]
  - HEADACHE [None]
  - HYPERHIDROSIS [None]
  - HYPOTENSION [None]
  - LETHARGY [None]
  - LOSS OF CONSCIOUSNESS [None]
  - LYMPHOEDEMA [None]
  - NASAL CONGESTION [None]
  - NASOPHARYNGITIS [None]
  - NAUSEA [None]
  - OROPHARYNGEAL PAIN [None]
  - RENAL FAILURE CHRONIC [None]
  - RESPIRATORY FAILURE [None]
  - RESTLESSNESS [None]
  - SEPTIC SHOCK [None]
  - STAPHYLOCOCCAL SEPSIS [None]
  - VENTRICULAR TACHYCARDIA [None]
  - VOMITING [None]
  - WOUND INFECTION PSEUDOMONAS [None]
